FAERS Safety Report 5503896-5 (Version None)
Quarter: 2007Q4

REPORT INFORMATION
  Report Type: 
  Country: None (occurrence: None)
  Receive Date: 20071101
  Receipt Date: 20071030
  Transmission Date: 20080405
  Serious: Yes (Life-Threatening, Hospitalization, Other)
  Sender: FDA-Public Use
  Company Number: DE-ELI_LILLY_AND_COMPANY-DE200709003117

PATIENT
  Age: 51 Year
  Sex: Female

DRUGS (4)
  1. OLANZAPINE [Suspect]
     Indication: BIPOLAR DISORDER
     Dosage: 2.5 MG, UNK
     Route: 048
     Dates: start: 20000101
  2. OLANZAPINE [Suspect]
     Dosage: 20 MG, UNK
     Route: 048
     Dates: start: 20070501
  3. OLANZAPINE [Suspect]
     Dosage: 2.5 MG, DAILY (1/D)
     Route: 048
     Dates: start: 20070716
  4. LITHIUM [Concomitant]
     Dosage: UNK, UNKNOWN
     Dates: start: 19950101

REACTIONS (4)
  - RENAL FAILURE [None]
  - SCHIZOAFFECTIVE DISORDER [None]
  - THERAPEUTIC AGENT TOXICITY [None]
  - WEIGHT INCREASED [None]
